FAERS Safety Report 7737500-2 (Version None)
Quarter: 2011Q3

REPORT INFORMATION
  Report Type: 
  Country: None (occurrence: None)
  Receive Date: 20110908
  Receipt Date: 20110830
  Transmission Date: 20111222
  Serious: Yes (Other)
  Sender: FDA-Public Use
  Company Number: GB-GLAXOSMITHKLINE-B0743779A

PATIENT
  Age: 30 Year
  Sex: Male

DRUGS (1)
  1. ALBUTEROL SULFATE AUTOHALER [Suspect]
     Indication: PRODUCT USED FOR UNKNOWN INDICATION
     Route: 055

REACTIONS (2)
  - ASTHMA [None]
  - DRUG INEFFECTIVE [None]
